FAERS Safety Report 6918860-9 (Version None)
Quarter: 2010Q3

REPORT INFORMATION
  Report Type: 
  Country: None (occurrence: None)
  Receive Date: 20100811
  Receipt Date: 20100517
  Transmission Date: 20110219
  Serious: No
  Sender: FDA-Public Use
  Company Number: US-TYCO HEALTHCARE/MALLINCKRODT-T201001267

PATIENT

DRUGS (2)
  1. ACETAMINOPHEN AND HYDROCODONE BITARTRATE [Suspect]
     Indication: PAIN
     Dosage: 2 TABLETS QID
     Route: 048
     Dates: start: 20100401
  2. METHADONE HCL [Concomitant]
     Indication: PAIN
     Dosage: UNK
     Dates: start: 20040101

REACTIONS (2)
  - DRUG SCREEN POSITIVE [None]
  - HEADACHE [None]
